FAERS Safety Report 12875709 (Version 1)
Quarter: 2016Q4

REPORT INFORMATION
  Report Type: Spontaneous
  Country: IT (occurrence: IT)
  Receive Date: 20161024
  Receipt Date: 20161024
  Transmission Date: 20170207
  Serious: Yes (Other)
  Sender: FDA-Public Use
  Company Number: IT-SUN PHARMACEUTICAL INDUSTRIES LTD-2016RR-125701

PATIENT
  Age: 44 Year
  Sex: Male

DRUGS (2)
  1. CITALOPRAM [Suspect]
     Active Substance: CITALOPRAM HYDROBROMIDE
     Indication: DEPRESSION
     Dosage: 1 DF TOTAL
     Route: 048
     Dates: start: 20160904, end: 20160904
  2. EN [Suspect]
     Active Substance: DELORAZEPAM
     Indication: ANXIETY
     Dosage: 5 GTT TOTAL
     Route: 048
     Dates: start: 20160904, end: 20160904

REACTIONS (1)
  - Sopor [Recovering/Resolving]

NARRATIVE: CASE EVENT DATE: 20160905
